FAERS Safety Report 9057340 (Version 1)
Quarter: 2013Q1

REPORT INFORMATION
  Report Type: Spontaneous
  Country: US (occurrence: US)
  Receive Date: 20130201
  Receipt Date: 20130201
  Transmission Date: 20140127
  Serious: No
  Sender: FDA-Public Use
  Company Number: US-009507513-1301USA012628

PATIENT
  Sex: Female
  Weight: 73.47 kg

DRUGS (5)
  1. ZOCOR [Suspect]
     Dosage: UNK
     Route: 048
     Dates: start: 200301, end: 200801
  2. COZAAR [Concomitant]
     Indication: BLOOD PRESSURE ABNORMAL
     Dosage: 50 MG, QD
     Route: 048
  3. METOPROLOL [Concomitant]
     Indication: PALPITATIONS
     Dosage: 50 MG, UNK
  4. ZYLOPRIM [Concomitant]
     Indication: RENAL DISORDER
     Dosage: 100 MG, UNK
  5. ASPIRIN [Concomitant]
     Indication: ANTICOAGULANT THERAPY
     Dosage: 81 MG, QD

REACTIONS (1)
  - Muscle spasms [Recovered/Resolved]
